FAERS Safety Report 8684692 (Version 2)
Quarter: 2013Q1

REPORT INFORMATION
  Report Type: Spontaneous
  Country: US (occurrence: US)
  Receive Date: 20120726
  Receipt Date: 20130122
  Transmission Date: 20140127
  Serious: Yes (Hospitalization)
  Sender: FDA-Public Use
  Company Number: US-ASTRAZENECA-2011SE21521

PATIENT
  Age: 38 Year
  Sex: Male
  Weight: 81.6 kg

DRUGS (12)
  1. SEROQUEL [Suspect]
     Indication: BIPOLAR I DISORDER
     Route: 048
     Dates: start: 2001
  2. SEROQUEL [Suspect]
     Indication: ANXIETY
     Route: 048
     Dates: start: 2001
  3. SEROQUEL [Suspect]
     Indication: SLEEP DISORDER
     Route: 048
     Dates: start: 2001
  4. SEROQUEL [Suspect]
     Indication: BIPOLAR I DISORDER
     Dosage: 300 MG IN THE MORNING AND 500 MG IN THE EVENING,BID FREQUENCY
     Route: 048
  5. SEROQUEL [Suspect]
     Indication: ANXIETY
     Dosage: 300 MG IN THE MORNING AND 500 MG IN THE EVENING,BID FREQUENCY
     Route: 048
  6. SEROQUEL [Suspect]
     Indication: SLEEP DISORDER
     Dosage: 300 MG IN THE MORNING AND 500 MG IN THE EVENING,BID FREQUENCY
     Route: 048
  7. SEROQUEL [Suspect]
     Indication: BIPOLAR I DISORDER
     Route: 048
     Dates: start: 2005
  8. SEROQUEL [Suspect]
     Indication: ANXIETY
     Route: 048
     Dates: start: 2005
  9. SEROQUEL [Suspect]
     Indication: SLEEP DISORDER
     Route: 048
     Dates: start: 2005
  10. DEPAKOTE [Concomitant]
     Indication: DEPRESSION
     Route: 048
  11. ATIVAN [Concomitant]
     Indication: ANXIETY
     Route: 048
  12. LITHIUM [Concomitant]
     Indication: BIPOLAR I DISORDER
     Route: 048

REACTIONS (11)
  - Hyperhidrosis [Recovered/Resolved]
  - Chills [Recovered/Resolved]
  - Aphagia [Recovered/Resolved]
  - Vomiting [Recovered/Resolved]
  - Insomnia [Not Recovered/Not Resolved]
  - Malaise [Unknown]
  - Gastroenteritis viral [Unknown]
  - Abdominal discomfort [Unknown]
  - Chondropathy [Not Recovered/Not Resolved]
  - Off label use [Unknown]
  - Drug dose omission [Recovered/Resolved]
